FAERS Safety Report 25371996 (Version 1)
Quarter: 2025Q2

REPORT INFORMATION
  Report Type: Spontaneous
  Country: GB (occurrence: GB)
  Receive Date: 20250529
  Receipt Date: 20250529
  Transmission Date: 20250717
  Serious: Yes (Other)
  Sender: RANBAXY
  Company Number: GB-SUN PHARMACEUTICAL INDUSTRIES LTD-2025RR-509511

PATIENT
  Age: 50 Year
  Sex: Male
  Weight: 65 kg

DRUGS (1)
  1. VENLAFAXINE [Suspect]
     Active Substance: VENLAFAXINE HYDROCHLORIDE
     Indication: Depression
     Route: 065

REACTIONS (4)
  - Feeling hot [Not Recovered/Not Resolved]
  - Fatigue [Unknown]
  - Anhedonia [Unknown]
  - Increased need for sleep [Unknown]

NARRATIVE: CASE EVENT DATE: 19740622
